FAERS Safety Report 10052724 (Version 1)
Quarter: 2014Q2

REPORT INFORMATION
  Report Type: Spontaneous
  Country: CA (occurrence: CA)
  Receive Date: 20140402
  Receipt Date: 20140402
  Transmission Date: 20141212
  Serious: Yes (Hospitalization, Other)
  Sender: FDA-Public Use
  Company Number: CA-PFIZER INC-2014090386

PATIENT
  Age: 64 Year
  Sex: Female
  Weight: 69 kg

DRUGS (33)
  1. LYRICA [Suspect]
     Dosage: UNK
     Route: 065
  2. OMEGA-3 FISH OIL CONCENTRATE [Suspect]
     Dosage: UNK
     Route: 065
  3. ATIVAN [Suspect]
     Dosage: UNK
     Route: 065
  4. CALCIUM CARBONATE [Suspect]
     Dosage: UNK
     Route: 065
  5. ALENDRONATE [Suspect]
     Dosage: UNK
     Route: 065
  6. ACIDOPHILUS [Suspect]
     Dosage: UNK
     Route: 065
  7. APO-K [Suspect]
     Dosage: 600 MG, UNK
     Route: 065
  8. APO-SULFATRIM [Suspect]
     Dosage: UNK
     Route: 065
  9. B100 COMPLEX [Suspect]
     Dosage: UNK
     Route: 065
  10. BACLOFEN [Suspect]
     Dosage: UNK
     Route: 065
  11. CELLCEPT [Suspect]
     Dosage: UNK
     Route: 065
  12. CYMBALTA [Suspect]
     Dosage: 1 DF, 1X/DAY
     Route: 048
  13. DOCUSATE SODIUM [Suspect]
     Dosage: UNK
  14. FUROSEMIDE [Suspect]
     Dosage: UNK
     Route: 065
  15. HYDROMORPHONE [Suspect]
     Dosage: UNK
     Route: 065
  16. IMMUNOGLOBULIN HUMAN NORMAL [Suspect]
     Dosage: UNK
     Route: 042
  17. IMODIUM [Suspect]
     Dosage: UNK
     Route: 065
  18. LORATADINE [Suspect]
     Dosage: 10 MG, UNK
     Route: 065
  19. MELATONIN [Suspect]
     Dosage: UNK
     Route: 065
  20. MULTIVITAMINS [Suspect]
     Dosage: UNK
     Route: 065
  21. NASONEX [Suspect]
     Dosage: UNK
     Route: 065
  22. NORTRIPTYLINE [Suspect]
     Dosage: UNK
     Route: 065
  23. NOVOHYDRAZIDE [Suspect]
     Dosage: UNK
     Route: 065
  24. PREDNISONE [Suspect]
     Dosage: UNK
     Route: 065
  25. SENNOSIDES [Suspect]
     Dosage: UNK
     Route: 065
  26. SENOKOT [Suspect]
     Dosage: UNK
     Route: 065
  27. TIZANIDINE [Suspect]
     Dosage: UNK
     Route: 065
  28. VITAMIN B12 [Suspect]
     Dosage: UNK
     Route: 065
  29. VITAMIN C [Suspect]
     Dosage: UNK
     Route: 065
  30. VITAMIN D [Suspect]
     Dosage: UNK
     Route: 065
  31. WARFARIN [Suspect]
     Dosage: UNK
     Route: 065
  32. ZANTAC [Suspect]
     Dosage: UNK
     Route: 065
  33. ZOPICLONE [Suspect]
     Dosage: UNK
     Route: 065

REACTIONS (4)
  - Coma [Recovered/Resolved]
  - Gastrooesophageal reflux disease [Recovered/Resolved]
  - Pneumonia aspiration [Recovered/Resolved]
  - Somnolence [Recovered/Resolved]
